FAERS Safety Report 5991984-9 (Version None)
Quarter: 2008Q4

REPORT INFORMATION
  Report Type: 
  Country: None (occurrence: None)
  Receive Date: 20081211
  Receipt Date: 20081209
  Transmission Date: 20090506
  Serious: Yes (Death)
  Sender: FDA-Public Use
  Company Number: ZW-B.I. PHARMACEUTICALS,INC./RIDGEFIELD-2008-BP-17588BP

PATIENT
  Sex: Female
  Weight: 3 kg

DRUGS (1)
  1. VIRAMUNE [Suspect]
     Indication: HIV INFECTION
     Dosage: 1.5ML
     Route: 048
     Dates: start: 20081024, end: 20081116

REACTIONS (1)
  - SEPSIS NEONATAL [None]
